FAERS Safety Report 23118831 (Version 2)
Quarter: 2023Q4

REPORT INFORMATION
  Report Type: Spontaneous
  Country: GB (occurrence: GB)
  Receive Date: 20231028
  Receipt Date: 20231107
  Transmission Date: 20240110
  Serious: Yes (Other)
  Sender: FDA-Public Use
  Company Number: None

PATIENT
  Age: 73 Year
  Sex: Male

DRUGS (5)
  1. PREDNISOLONE [Suspect]
     Active Substance: PREDNISOLONE
     Indication: VEXAS syndrome
     Dosage: 60 MILLIGRAM
     Route: 065
  2. PREDNISOLONE [Suspect]
     Active Substance: PREDNISOLONE
     Dosage: UNK, SLOWER WEAN OF STEROID
     Route: 065
  3. PREDNISOLONE [Suspect]
     Active Substance: PREDNISOLONE
     Dosage: 20 MILLIGRAM, QD, TAPERING DOWN
     Route: 065
  4. TOCILIZUMAB [Concomitant]
     Active Substance: TOCILIZUMAB
     Indication: VEXAS syndrome
     Dosage: UNK
     Route: 058
  5. TOCILIZUMAB [Concomitant]
     Active Substance: TOCILIZUMAB
     Indication: Bone marrow failure
     Dosage: UNK, SWITCHED TO INTRAVENOUS FORM
     Route: 042

REACTIONS (11)
  - Blood glucose fluctuation [Unknown]
  - C-reactive protein abnormal [Unknown]
  - Acne [Unknown]
  - Fatigue [Unknown]
  - Hypertension [Unknown]
  - Infection [Unknown]
  - Weight increased [Unknown]
  - Steroid withdrawal syndrome [Unknown]
  - Toxicity to various agents [Unknown]
  - Rash [Unknown]
  - Off label use [Unknown]
